FAERS Safety Report 15515832 (Version 1)
Quarter: 2018Q4

REPORT INFORMATION
  Report Type: Spontaneous
  Country: DK (occurrence: DK)
  Receive Date: 20181017
  Receipt Date: 20181017
  Transmission Date: 20190205
  Serious: Yes (Other)
  Sender: FDA-Public Use
  Company Number: DK-AUROBINDO-AUR-APL-2018-050533

PATIENT
  Age: 64 Year
  Sex: Female
  Weight: 83 kg

DRUGS (2)
  1. ALENDRONIC ACID TABLETS [Suspect]
     Active Substance: ALENDRONIC ACID
     Indication: OSTEOPOROSIS
     Dosage: 70 MILLIGRAM (DOSIS: 70 MG/WEEK, STYRKE: 70 MG)
     Route: 048
     Dates: start: 2002
  2. ACLASTA [Suspect]
     Active Substance: ZOLEDRONIC ACID
     Indication: OSTEOPOROSIS
     Dosage: 5 MILLIGRAM (DOSIS: 5 MG/YEAR, STYRKE: 5 MG)
     Route: 042
     Dates: start: 20101111, end: 20161130

REACTIONS (5)
  - Sequestrectomy [Recovered/Resolved]
  - Osteonecrosis of jaw [Recovered/Resolved]
  - Mouth swelling [Unknown]
  - Oral pain [Unknown]
  - Exposed bone in jaw [Unknown]

NARRATIVE: CASE EVENT DATE: 20170115
